FAERS Safety Report 6667107-X (Version None)
Quarter: 2010Q2

REPORT INFORMATION
  Report Type: 
  Country: None (occurrence: None)
  Receive Date: 20100405
  Receipt Date: 20100324
  Transmission Date: 20101027
  Serious: Yes (Congenital Anomaly, Other)
  Sender: FDA-Public Use
  Company Number: HR-PFIZER INC-2010038934

PATIENT
  Sex: Female
  Weight: 3.07 kg

DRUGS (4)
  1. ZIPRASIDONE HCL [Suspect]
     Dosage: 120 MG DAILY
     Route: 064
     Dates: end: 20090101
  2. ZIPRASIDONE HCL [Suspect]
     Dosage: 80 MG DAILY
     Route: 064
     Dates: start: 20090101, end: 20090301
  3. ZIPRASIDONE HCL [Suspect]
     Dosage: 40 MG DAILY
     Route: 064
     Dates: start: 20090301
  4. DIAZEPAM [Concomitant]
     Dosage: UNK
     Route: 064

REACTIONS (2)
  - CLEFT PALATE [None]
  - DRUG EXPOSURE DURING PREGNANCY [None]
